FAERS Safety Report 5885615-6 (Version None)
Quarter: 2008Q3

REPORT INFORMATION
  Report Type: 
  Country: None (occurrence: None)
  Receive Date: 20080912
  Receipt Date: 20080901
  Transmission Date: 20090109
  Serious: Yes (Other)
  Sender: FDA-Public Use
  Company Number: 2008AL010247

PATIENT
  Age: 47 Year
  Sex: Female

DRUGS (2)
  1. SPIRONOLACTONE [Suspect]
     Indication: HYPERALDOSTERONISM
     Dosage: 25 MG; QD; PO
     Route: 048
     Dates: start: 20080813, end: 20080816
  2. BENDROFLUMETHIAZIDE [Concomitant]

REACTIONS (3)
  - DIARRHOEA [None]
  - IMPAIRED DRIVING ABILITY [None]
  - SOMNOLENCE [None]
